FAERS Safety Report 10472467 (Version 1)
Quarter: 2014Q3

REPORT INFORMATION
  Report Type: Spontaneous
  Country: US (occurrence: None)
  Receive Date: 20140922
  Receipt Date: 20140922
  Transmission Date: 20150326
  Serious: Yes (Hospitalization, Other)
  Sender: FDA-Public Use
  Company Number: ADR-2014-01697

PATIENT
  Age: 78 Year
  Sex: Male

DRUGS (1)
  1. LIORESAL [Suspect]
     Active Substance: BACLOFEN
     Indication: MUSCLE SPASTICITY
     Dosage: 167 MCG/DAY

REACTIONS (9)
  - Malaise [None]
  - Underdose [None]
  - Nausea [None]
  - Dizziness [None]
  - Medical device complication [None]
  - Abasia [None]
  - Fall [None]
  - Muscle spasticity [None]
  - Aphagia [None]
